FAERS Safety Report 13738549 (Version 1)
Quarter: 2017Q3

REPORT INFORMATION
  Report Type: Report from Study
  Country: US (occurrence: US)
  Receive Date: 20170710
  Receipt Date: 20170710
  Transmission Date: 20171127
  Serious: No
  Sender: FDA-Public Use
  Company Number: US-SAOL THERAPEUTICS-2017SAO00182

PATIENT
  Age: 44 Year
  Sex: Female

DRUGS (8)
  1. DILAUDID [Suspect]
     Active Substance: HYDROMORPHONE HYDROCHLORIDE
     Dosage: 3.352 MG, \DAY
     Route: 037
     Dates: start: 20160317
  2. CLONIDINE. [Suspect]
     Active Substance: CLONIDINE
     Dosage: 144.71 ?G, \DAY
     Route: 037
  3. COMPOUNDED BACLOFEN [Suspect]
     Active Substance: BACLOFEN
     Dosage: 268.13 ?G, \DAY
     Route: 037
     Dates: start: 20160317
  4. CLONIDINE. [Suspect]
     Active Substance: CLONIDINE
     Dosage: 100.55 ?G, \DAY
     Route: 037
     Dates: start: 20160317
  5. BUPIVACAINE. [Suspect]
     Active Substance: BUPIVACAINE
     Dosage: 10.055 MG, \DAY
     Route: 037
     Dates: start: 20160317
  6. BUPIVACAINE. [Suspect]
     Active Substance: BUPIVACAINE
     Dosage: 14.471 MG, \DAY
     Route: 037
  7. DILAUDID [Suspect]
     Active Substance: HYDROMORPHONE HYDROCHLORIDE
     Dosage: 4.824 MG, \DAY
     Route: 037
  8. COMPOUNDED BACLOFEN [Suspect]
     Active Substance: BACLOFEN
     Dosage: 385.89 ?G, \DAY
     Route: 037

REACTIONS (1)
  - Implant site pain [Recovered/Resolved]

NARRATIVE: CASE EVENT DATE: 20160420
